FAERS Safety Report 17400221 (Version 1)
Quarter: 2020Q1

REPORT INFORMATION
  Report Type: Spontaneous
  Country: US (occurrence: US)
  Receive Date: 20200125
  Receipt Date: 20200125
  Transmission Date: 20200409
  Serious: No
  Sender: FDA-Public Use
  Company Number: None

PATIENT
  Age: 32 Year
  Sex: Female

DRUGS (2)
  1. HYDROXYPROG 250MG/ML (1ML) MDV [Suspect]
     Active Substance: HYDROXYPROGESTERONE
     Indication: PREMATURE LABOUR
     Dosage: ?          OTHER FREQUENCY:OTHER;?
     Route: 058
     Dates: start: 202001
  2. HYDROXYPROG 250MG/ML (1ML) MDV [Suspect]
     Active Substance: HYDROXYPROGESTERONE
     Indication: PROPHYLAXIS
     Dosage: ?          OTHER FREQUENCY:OTHER;?
     Route: 058
     Dates: start: 202001

REACTIONS (2)
  - Product use issue [None]
  - Product prescribing issue [None]

NARRATIVE: CASE EVENT DATE: 20200122
